FAERS Safety Report 13664067 (Version 2)
Quarter: 2017Q3

REPORT INFORMATION
  Report Type: Report from Study
  Country: US (occurrence: US)
  Receive Date: 20170619
  Receipt Date: 20170918
  Transmission Date: 20171127
  Serious: No
  Sender: FDA-Public Use
  Company Number: PHEH2017US018590

PATIENT
  Sex: Male
  Weight: 107.9 kg

DRUGS (1)
  1. COSENTYX [Suspect]
     Active Substance: SECUKINUMAB
     Indication: JUVENILE PSORIATIC ARTHRITIS
     Dosage: 300 MG, QMO
     Route: 058

REACTIONS (3)
  - Dry skin [Unknown]
  - Product use in unapproved indication [Unknown]
  - Pruritus generalised [Unknown]
